FAERS Safety Report 19312437 (Version 3)
Quarter: 2021Q2

REPORT INFORMATION
  Report Type: Report from Study
  Country: US (occurrence: US)
  Receive Date: 20210527
  Receipt Date: 20210614
  Transmission Date: 20210717
  Serious: No
  Sender: FDA-Public Use
  Company Number: NVSC2021US112970

PATIENT
  Age: 55 Year
  Sex: Female

DRUGS (2)
  1. KESIMPTA [Suspect]
     Active Substance: OFATUMUMAB
     Route: 058
  2. KESIMPTA [Suspect]
     Active Substance: OFATUMUMAB
     Indication: MULTIPLE SCLEROSIS
     Dosage: UNK, QMO
     Route: 058
     Dates: start: 202104

REACTIONS (13)
  - Device colour issue [Unknown]
  - Pain in extremity [Unknown]
  - Altered visual depth perception [Unknown]
  - Headache [Unknown]
  - Paraesthesia [Recovered/Resolved]
  - Muscle spasms [Unknown]
  - Trigeminal neuralgia [Unknown]
  - Speech disorder [Unknown]
  - Injection site pain [Unknown]
  - Pain [Unknown]
  - Anxiety [Unknown]
  - Gastrointestinal disorder [Unknown]
  - Fatigue [Unknown]

NARRATIVE: CASE EVENT DATE: 202104
